FAERS Safety Report 10365848 (Version 9)
Quarter: 2015Q4

REPORT INFORMATION
  Report Type: Report from Study
  Country: US (occurrence: US)
  Receive Date: 20140806
  Receipt Date: 20151030
  Transmission Date: 20160304
  Serious: Yes (Hospitalization, Other)
  Sender: FDA-Public Use
  Company Number: US-SA-2014SA102365

PATIENT
  Age: 55 Year
  Sex: Female

DRUGS (5)
  1. AUBAGIO [Suspect]
     Active Substance: TERIFLUNOMIDE
     Indication: MULTIPLE SCLEROSIS
     Route: 048
     Dates: start: 20140709
  2. AUBAGIO [Suspect]
     Active Substance: TERIFLUNOMIDE
     Indication: MULTIPLE SCLEROSIS
     Route: 048
     Dates: end: 20150714
  3. AUBAGIO [Suspect]
     Active Substance: TERIFLUNOMIDE
     Indication: MULTIPLE SCLEROSIS
     Route: 048
     Dates: start: 2015
  4. PROVIGIL [Concomitant]
     Active Substance: MODAFINIL
  5. ADDERALL [Concomitant]
     Active Substance: AMPHETAMINE ASPARTATE\AMPHETAMINE SULFATE\DEXTROAMPHETAMINE SACCHARATE\DEXTROAMPHETAMINE SULFATE

REACTIONS (16)
  - Mobility decreased [Unknown]
  - Intervertebral disc protrusion [Unknown]
  - Diarrhoea [Unknown]
  - Nausea [Unknown]
  - Optic nerve disorder [Unknown]
  - Pain in extremity [Unknown]
  - Decreased appetite [Unknown]
  - Impaired healing [Unknown]
  - Abdominal discomfort [Unknown]
  - Fatigue [Unknown]
  - Weight decreased [Unknown]
  - Diplopia [Unknown]
  - Meniscus injury [Unknown]
  - Visual impairment [Unknown]
  - Alopecia [Unknown]
  - Tendon operation [Unknown]

NARRATIVE: CASE EVENT DATE: 201408
